FAERS Safety Report 4890651-2 (Version None)
Quarter: 2006Q1

REPORT INFORMATION
  Report Type: 
  Country: None (occurrence: None)
  Receive Date: 20060125
  Receipt Date: 20050825
  Transmission Date: 20060701
  Serious: No
  Sender: FDA-Public Use
  Company Number: US-BRISTOL-MYERS SQUIBB COMPANY-13091830

PATIENT
  Age: 6 Decade
  Sex: Female

DRUGS (3)
  1. CARDIOLITE [Suspect]
     Dates: start: 20050701, end: 20050713
  2. DOPAMINE [Concomitant]
  3. ATROPINE [Concomitant]

REACTIONS (1)
  - SWELLING FACE [None]
